FAERS Safety Report 8178328-1 (Version None)
Quarter: 2012Q1

REPORT INFORMATION
  Report Type: 
  Country: None (occurrence: None)
  Receive Date: 20120126
  Receipt Date: 20111121
  Transmission Date: 20120608
  Serious: No
  Sender: FDA-Public Use
  Company Number: PHEH2011US02512

PATIENT
  Age: 13 Year
  Sex: Male

DRUGS (6)
  1. AFINITOR [Suspect]
     Indication: TUBEROUS SCLEROSIS
     Dosage: 2.5 MG, DAILY, ORAL : 5 MG : 10 MG DAILY : 15 MG : 20 MG
     Route: 048
     Dates: start: 20111118
  2. AFINITOR [Suspect]
     Indication: TUBEROUS SCLEROSIS
     Dosage: 2.5 MG, DAILY, ORAL : 5 MG : 10 MG DAILY : 15 MG : 20 MG
     Route: 048
     Dates: start: 20110818, end: 20110819
  3. AFINITOR [Suspect]
     Indication: TUBEROUS SCLEROSIS
     Dosage: 2.5 MG, DAILY, ORAL : 5 MG : 10 MG DAILY : 15 MG : 20 MG
     Route: 048
     Dates: start: 20111020, end: 20111117
  4. AFINITOR [Suspect]
     Indication: TUBEROUS SCLEROSIS
     Dosage: 2.5 MG, DAILY, ORAL : 5 MG : 10 MG DAILY : 15 MG : 20 MG
     Route: 048
     Dates: start: 20110912, end: 20111020
  5. AFINITOR [Suspect]
     Indication: TUBEROUS SCLEROSIS
     Dosage: 2.5 MG, DAILY, ORAL : 5 MG : 10 MG DAILY : 15 MG : 20 MG
     Route: 048
     Dates: start: 20110718, end: 20110818
  6. PHENOBARBITAL TAB [Concomitant]

REACTIONS (4)
  - NASOPHARYNGITIS [None]
  - DRUG ADMINISTRATION ERROR [None]
  - ABDOMINAL DISCOMFORT [None]
  - DRUG LEVEL BELOW THERAPEUTIC [None]
